FAERS Safety Report 18030882 (Version 1)
Quarter: 2020Q3

REPORT INFORMATION
  Report Type: Other
  Country: US (occurrence: US)
  Receive Date: 20200715
  Receipt Date: 20200715
  Transmission Date: 20201103
  Serious: Yes (Hospitalization)
  Sender: FDA-Public Use
  Company Number: US-ROCHE-2575307

PATIENT
  Sex: Female

DRUGS (1)
  1. ZELBORAF [Suspect]
     Active Substance: VEMURAFENIB
     Indication: COLON CANCER
     Dosage: TAKE 4 TABLETS BY MOUTH TWICE A DAY
     Route: 048

REACTIONS (3)
  - Pneumonia [Unknown]
  - Intentional product use issue [Unknown]
  - Off label use [Unknown]
